FAERS Safety Report 18319329 (Version 1)
Quarter: 2020Q3

REPORT INFORMATION
  Report Type: Spontaneous
  Country: FR (occurrence: FR)
  Receive Date: 20200928
  Receipt Date: 20200928
  Transmission Date: 20201103
  Serious: Yes (Life-Threatening)
  Sender: FDA-Public Use
  Company Number: FR-TEVA-2020-FR-1831386

PATIENT
  Age: 59 Year
  Sex: Female
  Weight: 76 kg

DRUGS (8)
  1. ESCITALOPRAM [Suspect]
     Active Substance: ESCITALOPRAM OXALATE
     Indication: POISONING DELIBERATE
     Dosage: 13 CP OF 10 MG
     Route: 048
     Dates: start: 20200807, end: 20200807
  2. LOXAPAC 25 MG, COMPRIME PELLICULE [Suspect]
     Active Substance: LOXAPINE SUCCINATE
     Indication: POISONING DELIBERATE
     Dosage: UNIT DOSE 30DF
     Route: 048
     Dates: start: 20200807, end: 20200807
  3. GLICLAZIDE [Suspect]
     Active Substance: GLICLAZIDE
     Indication: POISONING DELIBERATE
     Dosage: NOT SPECIFIED
     Route: 048
     Dates: start: 20200807, end: 20200807
  4. LANSOPRAZOLE. [Suspect]
     Active Substance: LANSOPRAZOLE
     Indication: POISONING DELIBERATE
     Dosage: NOT SPECIFIED
     Route: 048
     Dates: start: 20200807, end: 20200807
  5. ALPRAZOLAM. [Suspect]
     Active Substance: ALPRAZOLAM
     Indication: POISONING DELIBERATE
     Dosage: 33 CP OF 5 MG
     Route: 048
     Dates: start: 20200807, end: 20200807
  6. SERESTA 10 MG, COMPRIME [Suspect]
     Active Substance: OXAZEPAM
     Indication: POISONING DELIBERATE
     Dosage: UNIT DOSE 9DF
     Route: 048
     Dates: start: 20200807, end: 20200807
  7. ZOPICLONE [Suspect]
     Active Substance: ZOPICLONE
     Indication: POISONING DELIBERATE
     Dosage: 14 CP OF 7.5
     Route: 048
     Dates: start: 20200807, end: 20200807
  8. DOLIPRANE [Suspect]
     Active Substance: ACETAMINOPHEN
     Indication: POISONING DELIBERATE
     Dosage: UNIT DOSE 14DF
     Route: 048
     Dates: start: 20200807, end: 20200807

REACTIONS (1)
  - Coma [Recovered/Resolved]

NARRATIVE: CASE EVENT DATE: 20200807
